FAERS Safety Report 9029148 (Version 1)
Quarter: 2013Q1

REPORT INFORMATION
  Report Type: Spontaneous
  Country: US (occurrence: US)
  Receive Date: 20130124
  Receipt Date: 20130124
  Transmission Date: 20140127
  Serious: No
  Sender: FDA-Public Use
  Company Number: US-ASTRAZENECA-2013SE03334

PATIENT
  Age: 85 Year
  Sex: Female
  Weight: 63.5 kg

DRUGS (13)
  1. NEXIUM [Suspect]
     Indication: GASTROOESOPHAGEAL REFLUX DISEASE
     Route: 048
     Dates: start: 20121203
  2. METOPROLOL [Suspect]
     Route: 065
  3. OMEPRAZOLE [Suspect]
     Indication: GASTROOESOPHAGEAL REFLUX DISEASE
     Route: 048
     Dates: end: 201212
  4. VIT D [Concomitant]
  5. METFORMIN [Concomitant]
  6. COZAAR [Concomitant]
  7. AMLODIPINE [Concomitant]
  8. CHLOR-CON [Concomitant]
  9. ASA [Concomitant]
  10. MECLIZINE [Concomitant]
  11. OXYBUTININ [Concomitant]
  12. DIGOXIN [Concomitant]
  13. GLYBURIDE [Concomitant]

REACTIONS (3)
  - Blood glucose increased [Unknown]
  - Dry mouth [Unknown]
  - Drug ineffective [Recovered/Resolved]
